APPROVED DRUG PRODUCT: BUTALBITAL, ACETAMINOPHEN AND CAFFEINE
Active Ingredient: ACETAMINOPHEN; BUTALBITAL; CAFFEINE
Strength: 325MG;50MG;40MG
Dosage Form/Route: CAPSULE;ORAL
Application: A088765 | Product #001
Applicant: DM GRAHAM LABORATORIES INC
Approved: Mar 27, 1985 | RLD: No | RS: No | Type: DISCN